FAERS Safety Report 5794176-1 (Version None)
Quarter: 2008Q2

REPORT INFORMATION
  Report Type: 
  Country: None (occurrence: None)
  Receive Date: 20080627
  Receipt Date: 20080617
  Transmission Date: 20081010
  Serious: Yes (Hospitalization)
  Sender: FDA-Public Use
  Company Number: ES-PFIZER INC-2008050736

PATIENT
  Age: 74 Year
  Sex: Male

DRUGS (10)
  1. LYRICA [Suspect]
     Indication: NEURALGIA
     Route: 048
     Dates: start: 20080418, end: 20080426
  2. OMEPRAZOLE [Concomitant]
     Route: 048
  3. LOSARTAN POTASSIUM [Concomitant]
     Route: 048
  4. ACTRAPID [Concomitant]
     Route: 051
  5. LANTUS [Concomitant]
     Route: 051
  6. OMNIC [Concomitant]
     Route: 048
  7. ORFIDAL [Concomitant]
     Route: 048
  8. VESICARE [Concomitant]
     Route: 048
  9. ATORVASTATIN [Concomitant]
     Route: 048
  10. ISCOVER [Concomitant]
     Route: 048

REACTIONS (2)
  - DIABETES MELLITUS INADEQUATE CONTROL [None]
  - HYPERGLYCAEMIA [None]
